FAERS Safety Report 10362707 (Version 1)
Quarter: 2014Q3

REPORT INFORMATION
  Report Type: Spontaneous
  Country: US (occurrence: US)
  Receive Date: 20140805
  Receipt Date: 20140805
  Transmission Date: 20150326
  Serious: No
  Sender: FDA-Public Use
  Company Number: US-PFIZER INC-2014215845

PATIENT
  Age: 32 Year
  Sex: Male
  Weight: 81.63 kg

DRUGS (1)
  1. PRISTIQ EXTENDED RELEASE [Suspect]
     Active Substance: DESVENLAFAXINE SUCCINATE
     Indication: ANXIETY
     Dosage: 50 MG, 1X/DAY
     Route: 048
     Dates: start: 201301

REACTIONS (5)
  - Weight increased [Not Recovered/Not Resolved]
  - Blood cholesterol increased [Not Recovered/Not Resolved]
  - Mood swings [Not Recovered/Not Resolved]
  - Nightmare [Not Recovered/Not Resolved]
  - Libido disorder [Not Recovered/Not Resolved]

NARRATIVE: CASE EVENT DATE: 201301
